FAERS Safety Report 22029309 (Version 3)
Quarter: 2023Q1

REPORT INFORMATION
  Report Type: Report from Study
  Country: LT (occurrence: LT)
  Receive Date: 20230223
  Receipt Date: 20230331
  Transmission Date: 20230417
  Serious: Yes (Life-Threatening, Hospitalization, Other)
  Sender: FDA-Public Use
  Company Number: LT-JNJFOC-20230229803

PATIENT
  Age: 34 Year
  Sex: Male
  Weight: 86 kg

DRUGS (33)
  1. SELEXIPAG [Suspect]
     Active Substance: SELEXIPAG
     Indication: Pulmonary arterial hypertension
     Route: 048
     Dates: start: 20200417, end: 20200424
  2. SELEXIPAG [Suspect]
     Active Substance: SELEXIPAG
     Route: 048
     Dates: start: 20200424, end: 20200505
  3. SELEXIPAG [Suspect]
     Active Substance: SELEXIPAG
     Route: 048
     Dates: start: 20200505, end: 20200511
  4. SELEXIPAG [Suspect]
     Active Substance: SELEXIPAG
     Route: 048
     Dates: start: 20200511, end: 20200518
  5. SELEXIPAG [Suspect]
     Active Substance: SELEXIPAG
     Route: 048
     Dates: start: 20200518, end: 20200603
  6. SELEXIPAG [Suspect]
     Active Substance: SELEXIPAG
     Route: 048
     Dates: start: 20200603, end: 20200702
  7. SELEXIPAG [Suspect]
     Active Substance: SELEXIPAG
     Route: 048
     Dates: start: 20200702, end: 20200808
  8. SELEXIPAG [Suspect]
     Active Substance: SELEXIPAG
     Route: 048
     Dates: start: 20200808, end: 20200825
  9. SELEXIPAG [Suspect]
     Active Substance: SELEXIPAG
     Route: 048
     Dates: start: 20200825, end: 20201009
  10. SELEXIPAG [Suspect]
     Active Substance: SELEXIPAG
     Route: 048
     Dates: start: 20201009, end: 20201010
  11. SELEXIPAG [Suspect]
     Active Substance: SELEXIPAG
     Route: 048
     Dates: start: 20201010, end: 20201011
  12. SELEXIPAG [Suspect]
     Active Substance: SELEXIPAG
     Route: 048
     Dates: start: 20201011, end: 20201012
  13. SELEXIPAG [Suspect]
     Active Substance: SELEXIPAG
     Route: 048
     Dates: start: 20201012, end: 20201013
  14. SELEXIPAG [Suspect]
     Active Substance: SELEXIPAG
     Route: 048
     Dates: start: 20201013, end: 20201014
  15. SILDENAFIL [Concomitant]
     Active Substance: SILDENAFIL
     Indication: Pulmonary arterial hypertension
     Route: 048
     Dates: start: 201007, end: 20110427
  16. SILDENAFIL [Concomitant]
     Active Substance: SILDENAFIL
     Route: 048
     Dates: start: 20110427, end: 20140608
  17. SILDENAFIL [Concomitant]
     Active Substance: SILDENAFIL
     Route: 048
     Dates: start: 20140608
  18. AMBRISENTAN [Concomitant]
     Active Substance: AMBRISENTAN
     Indication: Pulmonary arterial hypertension
     Route: 048
     Dates: start: 20180329, end: 20200224
  19. AMBRISENTAN [Concomitant]
     Active Substance: AMBRISENTAN
     Route: 048
     Dates: start: 20200224
  20. TREPROSTINIL [Concomitant]
     Active Substance: TREPROSTINIL
     Indication: Pulmonary arterial hypertension
     Dosage: INTRAVENOUS OR FOR SUBCUTANEOUS USE
     Route: 058
     Dates: start: 20201008, end: 20201009
  21. TREPROSTINIL [Concomitant]
     Active Substance: TREPROSTINIL
     Dosage: INTRAVENOUS OR FOR SUBCUTANEOUS USE
     Route: 058
     Dates: start: 20201009, end: 20201010
  22. TREPROSTINIL [Concomitant]
     Active Substance: TREPROSTINIL
     Dosage: INTRAVENOUS OR FOR SUBCUTANEOUS USE
     Route: 058
     Dates: start: 20201010, end: 20201011
  23. TREPROSTINIL [Concomitant]
     Active Substance: TREPROSTINIL
     Dosage: INTRAVENOUS OR FOR SUBCUTANEOUS USE
     Route: 048
     Dates: start: 20201011, end: 20201012
  24. TREPROSTINIL [Concomitant]
     Active Substance: TREPROSTINIL
     Dosage: INTRAVENOUS OR FOR SUBCUTANEOUS USE
     Route: 048
     Dates: start: 20201012, end: 20201013
  25. TREPROSTINIL [Concomitant]
     Active Substance: TREPROSTINIL
     Dosage: INTRAVENOUS OR FOR SUBCUTANEOUS USE
     Route: 058
     Dates: start: 20201013, end: 20201014
  26. TREPROSTINIL [Concomitant]
     Active Substance: TREPROSTINIL
     Dosage: INTRAVENOUS OR FOR SUBCUTANEOUS USE
     Route: 058
     Dates: start: 20201014, end: 20201028
  27. TREPROSTINIL [Concomitant]
     Active Substance: TREPROSTINIL
     Dosage: INTRAVENOUS OR FOR SUBCUTANEOUS USE
     Route: 058
     Dates: start: 20201028, end: 20201103
  28. TREPROSTINIL [Concomitant]
     Active Substance: TREPROSTINIL
     Dosage: INTRAVENOUS OR FOR SUBCUTANEOUS USE
     Route: 058
     Dates: start: 20201103, end: 20201105
  29. TREPROSTINIL [Concomitant]
     Active Substance: TREPROSTINIL
     Dosage: INTRAVENOUS OR FOR SUBCUTANEOUS USE
     Route: 058
     Dates: start: 20201105, end: 20201202
  30. TREPROSTINIL [Concomitant]
     Active Substance: TREPROSTINIL
     Dosage: INTRAVENOUS OR FOR SUBCUTANEOUS USE
     Route: 058
     Dates: start: 20201202, end: 20201209
  31. TREPROSTINIL [Concomitant]
     Active Substance: TREPROSTINIL
     Dosage: INTRAVENOUS OR FOR SUBCUTANEOUS USE
     Route: 058
     Dates: start: 20201209, end: 20201216
  32. TREPROSTINIL [Concomitant]
     Active Substance: TREPROSTINIL
     Dosage: INTRAVENOUS OR FOR SUBCUTANEOUS USE
     Route: 058
     Dates: start: 20201216, end: 20201223
  33. TREPROSTINIL [Concomitant]
     Active Substance: TREPROSTINIL
     Dosage: INTRAVENOUS OR FOR SUBCUTANEOUS USE
     Route: 058
     Dates: start: 20210106

REACTIONS (1)
  - Obstructive sleep apnoea syndrome [Recovered/Resolved]

NARRATIVE: CASE EVENT DATE: 20200825
